APPROVED DRUG PRODUCT: ESTRADIOL
Active Ingredient: ESTRADIOL
Strength: 10MCG
Dosage Form/Route: TABLET;VAGINAL
Application: A210264 | Product #001 | TE Code: AB
Applicant: GLENMARK PHARMACEUTICALS LTD
Approved: Sep 14, 2018 | RLD: No | RS: No | Type: RX